FAERS Safety Report 7176400-6 (Version None)
Quarter: 2010Q4

REPORT INFORMATION
  Report Type: 
  Country: None (occurrence: None)
  Receive Date: 20101220
  Receipt Date: 20101206
  Transmission Date: 20110411
  Serious: No
  Sender: FDA-Public Use
  Company Number: US-PFIZER INC-2010167866

PATIENT
  Age: 97 Year
  Sex: Female
  Weight: 68.027 kg

DRUGS (2)
  1. ADVIL [Suspect]
     Dosage: 2 LIQUI-GELS
     Route: 048
     Dates: start: 20101129
  2. METOPROLOL [Concomitant]

REACTIONS (2)
  - THROAT IRRITATION [None]
  - WRONG TECHNIQUE IN DRUG USAGE PROCESS [None]
